FAERS Safety Report 4468362-7 (Version None)
Quarter: 2004Q4

REPORT INFORMATION
  Report Type: 
  Country: None (occurrence: None)
  Receive Date: 20041007
  Receipt Date: 20031219
  Transmission Date: 20050328
  Serious: Yes (Other)
  Sender: FDA-Public Use
  Company Number: 356725

PATIENT
  Sex: Female

DRUGS (1)
  1. COREG [Suspect]
     Route: 048
     Dates: start: 20021201

REACTIONS (3)
  - DRUG EXPOSURE DURING PREGNANCY [None]
  - HYPERTENSION [None]
  - INDUCED LABOUR [None]
